FAERS Safety Report 25124308 (Version 1)
Quarter: 2025Q1

REPORT INFORMATION
  Report Type: Spontaneous
  Country: FR (occurrence: FR)
  Receive Date: 20250326
  Receipt Date: 20250326
  Transmission Date: 20250408
  Serious: Yes (Hospitalization)
  Sender: NOVARTIS
  Company Number: FR-002147023-NVSC2025FR048634

PATIENT

DRUGS (6)
  1. CYCLOSPORINE [Suspect]
     Active Substance: CYCLOSPORINE
     Indication: Product used for unknown indication
     Route: 042
     Dates: start: 20200708, end: 20200728
  2. CYCLOSPORINE [Suspect]
     Active Substance: CYCLOSPORINE
     Route: 048
     Dates: start: 20200728, end: 20210803
  3. FLUDARABINE [Concomitant]
     Active Substance: FLUDARABINE PHOSPHATE
     Indication: Product used for unknown indication
     Route: 042
     Dates: start: 20200703, end: 20200707
  4. BUSULFAN [Concomitant]
     Active Substance: BUSULFAN
     Indication: Product used for unknown indication
     Route: 042
     Dates: start: 20200703, end: 20200706
  5. THYMOGLOBULIN [Concomitant]
     Active Substance: LAPINE T-LYMPHOCYTE IMMUNE GLOBULIN
     Indication: Product used for unknown indication
     Route: 042
     Dates: start: 20200706, end: 20200707
  6. METHOTREXATE [Concomitant]
     Active Substance: METHOTREXATE
     Indication: Product used for unknown indication
     Route: 042
     Dates: start: 20200710, end: 20200720

REACTIONS (1)
  - Graft versus host disease [Unknown]

NARRATIVE: CASE EVENT DATE: 20200923
